FAERS Safety Report 18575229 (Version 1)
Quarter: 2020Q4

REPORT INFORMATION
  Report Type: Spontaneous
  Country: US (occurrence: US)
  Receive Date: 20201202
  Receipt Date: 20201202
  Transmission Date: 20210114
  Serious: Yes (Hospitalization)
  Sender: FDA-Public Use
  Company Number: None

PATIENT
  Age: 75 Year
  Sex: Male
  Weight: 76 kg

DRUGS (1)
  1. IBRUTINIB (IBRUTINIB 140MG CAP, ORAL) [Suspect]
     Active Substance: IBRUTINIB
     Indication: B-CELL SMALL LYMPHOCYTIC LYMPHOMA
     Route: 048
     Dates: start: 20201019, end: 20201109

REACTIONS (3)
  - Stomatitis [None]
  - Throat irritation [None]
  - Rash [None]

NARRATIVE: CASE EVENT DATE: 20201108
